FAERS Safety Report 8607478-8 (Version None)
Quarter: 2012Q3

REPORT INFORMATION
  Report Type: 
  Country: None (occurrence: None)
  Receive Date: 20120821
  Receipt Date: 20120810
  Transmission Date: 20120928
  Serious: Yes (Other)
  Sender: FDA-Public Use
  Company Number: US-JNJFOC-20120806741

PATIENT
  Sex: Male
  Weight: 56.02 kg

DRUGS (5)
  1. UNKNOWN MEDICATION [Suspect]
     Indication: COLITIS ULCERATIVE
     Route: 048
     Dates: start: 20120301
  2. ZANTAC [Concomitant]
     Indication: HYPERCHLORHYDRIA
     Route: 048
     Dates: start: 20110201
  3. REMICADE [Suspect]
     Indication: COLITIS ULCERATIVE
     Route: 042
     Dates: start: 20110101
  4. LEVSIN [Concomitant]
     Indication: MUSCLE SPASMS
     Route: 048
     Dates: start: 20100901
  5. ALENDRONATE SODIUM [Suspect]
     Indication: OSTEOPOROSIS PROPHYLAXIS
     Route: 065
     Dates: start: 20120301

REACTIONS (1)
  - URINARY RETENTION [None]
